FAERS Safety Report 7643495-2 (Version None)
Quarter: 2011Q3

REPORT INFORMATION
  Report Type: 
  Country: None (occurrence: None)
  Receive Date: 20110729
  Receipt Date: 20110721
  Transmission Date: 20111222
  Serious: Yes (Death)
  Sender: FDA-Public Use
  Company Number: US-BAYER-201031063NA

PATIENT
  Age: 18 Year
  Sex: Female
  Weight: 147 kg

DRUGS (9)
  1. LISINOPRIL [Concomitant]
     Indication: HYPERTENSION
     Dates: start: 20070801
  2. ROBITUSSIN AC [CODEINE PHOSPHATE,GUAIFENESIN] [Concomitant]
     Indication: COUGH
     Route: 048
     Dates: start: 20080604
  3. LEVAQUIN [Concomitant]
     Indication: PNEUMONIA
  4. GLUCOPHAGE [Concomitant]
     Indication: GLUCOSE TOLERANCE IMPAIRED
     Route: 048
  5. ALBUTEROL SULFATE AUTOHALER [Concomitant]
     Dosage: EVERY 4-6 HRS
  6. LEVAQUIN [Concomitant]
     Indication: BRONCHITIS
     Dates: start: 20080604
  7. PREDNISONE [Concomitant]
  8. YASMIN [Suspect]
     Indication: MENSTRUATION IRREGULAR
     Dosage: UNK
     Dates: start: 20070801, end: 20080601
  9. AUGMENTIN '125' [Concomitant]
     Dates: start: 20080515

REACTIONS (3)
  - PULMONARY EMBOLISM [None]
  - ACUTE RESPIRATORY FAILURE [None]
  - DEEP VEIN THROMBOSIS [None]
